FAERS Safety Report 6022093-0 (Version None)
Quarter: 2008Q4

REPORT INFORMATION
  Report Type: 
  Country: None (occurrence: None)
  Receive Date: 20081223
  Receipt Date: 20081209
  Transmission Date: 20090506
  Serious: Yes (Hospitalization)
  Sender: FDA-Public Use
  Company Number: KV200801072

PATIENT
  Age: 69 Year
  Sex: Male

DRUGS (3)
  1. MORPHINE SULFATE [Suspect]
     Indication: BACK PAIN
     Dosage: 15 MG, SINGLE, ORAL
     Route: 048
     Dates: start: 20080815, end: 20080815
  2. VELCADE [Concomitant]
  3. NEURONTIN [Concomitant]

REACTIONS (3)
  - INCOHERENT [None]
  - LETHARGY [None]
  - PRODUCT QUALITY ISSUE [None]
